FAERS Safety Report 4283057-0 (Version None)
Quarter: 2004Q1

REPORT INFORMATION
  Report Type: 
  Country: None (occurrence: None)
  Receive Date: 20040129
  Receipt Date: 20040126
  Transmission Date: 20041129
  Serious: Yes (Death)
  Sender: FDA-Public Use
  Company Number: 2004UW01321

PATIENT
  Age: 61 Year
  Sex: Female

DRUGS (18)
  1. IRESSA [Suspect]
     Indication: NON-SMALL CELL LUNG CANCER
     Dosage: 250 MG PO
     Route: 048
     Dates: start: 20030901
  2. REMERON [Concomitant]
  3. ATIVAN [Concomitant]
  4. OXYCODONE HCL [Concomitant]
  5. OXYCONTIN [Concomitant]
  6. NORVASC [Concomitant]
  7. COMPAZINE [Concomitant]
  8. PREDNISONE [Concomitant]
  9. AUGMENTIN '125' [Concomitant]
  10. ASPIRIN [Concomitant]
  11. ROBITUSSIN ^ROBINS^ [Concomitant]
  12. ZITHROMAX ^HENIRICH MACK^ [Concomitant]
  13. FIBER LAXATIVE [Concomitant]
  14. OXYGEN [Concomitant]
  15. ALBUTEROL [Concomitant]
  16. FLOVENT [Concomitant]
  17. ATROVENT [Concomitant]
  18. SEREVENT [Concomitant]

REACTIONS (1)
  - DEATH [None]
